FAERS Safety Report 7007626-X (Version None)
Quarter: 2010Q3

REPORT INFORMATION
  Report Type: 
  Country: None (occurrence: None)
  Receive Date: 20100922
  Receipt Date: 20100914
  Transmission Date: 20110219
  Serious: Yes (Other)
  Sender: FDA-Public Use
  Company Number: NO-PFIZER INC-2010110098

PATIENT
  Age: 79 Year
  Sex: Female

DRUGS (7)
  1. AMLODIPINE BESYLATE [Suspect]
     Indication: HYPERTENSION
     Route: 048
  2. PLAVIX [Interacting]
     Dosage: 75 MG, DAILY
     Route: 048
     Dates: start: 20100201
  3. ALBYL-E [Interacting]
     Dosage: 75 MG, DAILY
     Route: 048
  4. LIPITOR [Concomitant]
  5. MONOKET [Concomitant]
  6. METOPROLOL SUCCINATE [Concomitant]
  7. NITROMEX [Concomitant]
     Dosage: 0.5 MG WHEN NEEDED

REACTIONS (4)
  - ARTERIAL DISORDER [None]
  - DRUG INTERACTION [None]
  - GINGIVAL BLEEDING [None]
  - MYOCARDIAL INFARCTION [None]
